FAERS Safety Report 11513772 (Version 7)
Quarter: 2023Q1

REPORT INFORMATION
  Report Type: Report from Study
  Country: US (occurrence: US)
  Receive Date: 20150916
  Receipt Date: 20230106
  Transmission Date: 20230418
  Serious: Yes (Other)
  Sender: FDA-Public Use
  Company Number: US-PFIZER INC-2015295843

PATIENT
  Sex: Female
  Weight: 70 kg

DRUGS (5)
  1. LYRICA [Interacting]
     Active Substance: PREGABALIN
     Indication: Fibromyalgia
     Dosage: 75 MG, 2X/DAY
     Route: 065
     Dates: start: 201403
  2. LYRICA [Interacting]
     Active Substance: PREGABALIN
     Dosage: 75 MG, 4X/DAY
     Route: 048
     Dates: start: 201404
  3. LYRICA [Interacting]
     Active Substance: PREGABALIN
     Dosage: 300 MG, DAILY;(TAKE FOUR DAILY BY MOUTH) (START 2014)
     Route: 048
  4. LYRICA [Interacting]
     Active Substance: PREGABALIN
     Dosage: 75 MG QID (TAKE 1 CAPSULE BY MOUTH 4 TIMES A DAY)
     Route: 048
  5. SYNTHROID [Concomitant]
     Active Substance: LEVOTHYROXINE SODIUM
     Indication: Thyroid disorder
     Dosage: 112 ?G, 1X/DAY REGIMEN DOSE UNIT: MICROGRAM
     Route: 065

REACTIONS (15)
  - Ventricular extrasystoles [Unknown]
  - Skin discolouration [Unknown]
  - Crying [Unknown]
  - Musculoskeletal stiffness [Unknown]
  - Rash [Not Recovered/Not Resolved]
  - Pruritus [Recovered/Resolved]
  - Feeling abnormal [Not Recovered/Not Resolved]
  - Anxiety [Not Recovered/Not Resolved]
  - Chest pain [Unknown]
  - Pain in extremity [Unknown]
  - Middle insomnia [Unknown]
  - Therapeutic product effect increased [Unknown]
  - Drug interaction [Unknown]
  - Product dose omission issue [Unknown]
  - Off label use [Unknown]
